FAERS Safety Report 8368922-7 (Version None)
Quarter: 2012Q2

REPORT INFORMATION
  Report Type: 
  Country: None (occurrence: None)
  Receive Date: 20120516
  Receipt Date: 20120516
  Transmission Date: 20120825
  Serious: Yes (Hospitalization)
  Sender: FDA-Public Use
  Company Number: None

PATIENT
  Sex: Female
  Weight: 91.3 kg

DRUGS (1)
  1. AVASTIN [Suspect]
     Dosage: 932 MG Q2W IV
     Route: 042
     Dates: start: 20110201, end: 20110913

REACTIONS (3)
  - SEROMA [None]
  - INCISION SITE COMPLICATION [None]
  - BREAST NECROSIS [None]
